FAERS Safety Report 14482888 (Version 6)
Quarter: 2019Q2

REPORT INFORMATION
  Report Type: Spontaneous
  Country: PL (occurrence: PL)
  Receive Date: 20180203
  Receipt Date: 20190430
  Transmission Date: 20190711
  Serious: Yes (Hospitalization, Other)
  Sender: FDA-Public Use
  Company Number: PL-AUROBINDO-AUR-APL-2018-004322

PATIENT

DRUGS (1)
  1. AMOXICILLIN+CLAVULANIC ACID [Suspect]
     Active Substance: AMOXICILLIN\CLAVULANIC ACID
     Indication: UPPER RESPIRATORY TRACT INFECTION BACTERIAL
     Dosage: UNK
     Route: 065

REACTIONS (17)
  - Dry mouth [Unknown]
  - Back pain [Unknown]
  - Activated partial thromboplastin time prolonged [Recovered/Resolved]
  - Drug ineffective [Unknown]
  - Coagulation time prolonged [Unknown]
  - Musculoskeletal chest pain [Recovered/Resolved]
  - Glucose tolerance impaired [Unknown]
  - Inflammatory marker increased [Recovered/Resolved]
  - Pharyngeal erythema [Unknown]
  - Prothrombin time prolonged [Unknown]
  - Somnolence [Unknown]
  - Ultrasound scan abnormal [Recovered/Resolved]
  - Abdominal pain lower [Unknown]
  - Abdominal pain [Recovered/Resolved]
  - Lung consolidation [Recovered/Resolved]
  - Coagulation factor increased [Unknown]
  - Disease progression [Recovering/Resolving]
